FAERS Safety Report 14910760 (Version 1)
Quarter: 2018Q2

REPORT INFORMATION
  Report Type: Spontaneous
  Country: US (occurrence: US)
  Receive Date: 20180517
  Receipt Date: 20180517
  Transmission Date: 20180711
  Serious: No
  Sender: FDA-Public Use
  Company Number: US-SYNERGY PHARMACEUTICALS INC-US-2018SNG000047

PATIENT

DRUGS (3)
  1. TRULANCE [Suspect]
     Active Substance: PLECANATIDE
     Indication: CONSTIPATION
     Dosage: 3 MG, QD
     Route: 048
     Dates: start: 20180227, end: 20180227
  2. TRULANCE [Suspect]
     Active Substance: PLECANATIDE
     Dosage: 1/2 OF A 3 MG TABLET ONCE DAILY
     Route: 048
     Dates: start: 20180305
  3. ATIVAN [Concomitant]
     Active Substance: LORAZEPAM
     Indication: PAIN
     Dosage: 0.5 MG, Q6HRS, PRN
     Route: 048

REACTIONS (7)
  - Muscle spasms [Not Recovered/Not Resolved]
  - Fatigue [Unknown]
  - Nausea [Recovering/Resolving]
  - Diarrhoea [Recovered/Resolved]
  - Product use issue [Unknown]
  - Abdominal pain [Unknown]
  - Insomnia [Not Recovered/Not Resolved]

NARRATIVE: CASE EVENT DATE: 20180227
